FAERS Safety Report 7228315-2 (Version None)
Quarter: 2011Q1

REPORT INFORMATION
  Report Type: 
  Country: None (occurrence: None)
  Receive Date: 20110114
  Receipt Date: 20101209
  Transmission Date: 20110831
  Serious: Yes (Death, Other)
  Sender: FDA-Public Use
  Company Number: US-BAXTER-2008BH010177

PATIENT
  Age: 77 Year
  Sex: Female
  Weight: 56 kg

DRUGS (45)
  1. HEPARIN SODIUM INJECTION [Suspect]
     Indication: THROMBOSIS PROPHYLAXIS
     Route: 042
     Dates: start: 20071113, end: 20080113
  2. HEPARIN SODIUM INJECTION [Suspect]
     Route: 042
     Dates: start: 20071113, end: 20080113
  3. HEPARIN SODIUM INJECTION [Suspect]
     Route: 042
     Dates: start: 20071113, end: 20080113
  4. HEPARIN SODIUM INJECTION [Suspect]
     Route: 040
     Dates: start: 20071212, end: 20071212
  5. HEPARIN SODIUM INJECTION [Suspect]
     Route: 040
     Dates: start: 20071218, end: 20071218
  6. HEPARIN SODIUM INJECTION [Suspect]
     Route: 040
     Dates: start: 20071218, end: 20071218
  7. HEPARIN SODIUM INJECTION [Suspect]
     Route: 058
     Dates: start: 20071115, end: 20071115
  8. HEPARIN SODIUM INJECTION [Suspect]
     Route: 042
     Dates: start: 20071113, end: 20080113
  9. HEPARIN SODIUM INJECTION [Suspect]
     Route: 058
     Dates: start: 20071126, end: 20071126
  10. HEPARIN SODIUM INJECTION [Suspect]
     Route: 058
     Dates: start: 20071125, end: 20071125
  11. HEPARIN SODIUM INJECTION [Suspect]
     Route: 040
     Dates: start: 20071212, end: 20071212
  12. HEPARIN SODIUM 5,000 UNITS IN DEXTROSE 5% [Suspect]
     Indication: THROMBOSIS PROPHYLAXIS
     Route: 041
     Dates: start: 20071212, end: 20071201
  13. REMERON [Concomitant]
     Indication: PRODUCT USED FOR UNKNOWN INDICATION
     Route: 065
  14. NORVASC [Concomitant]
     Indication: PRODUCT USED FOR UNKNOWN INDICATION
     Route: 065
  15. REMERON [Concomitant]
     Route: 065
  16. LORAZEPAM [Concomitant]
     Indication: PRODUCT USED FOR UNKNOWN INDICATION
     Route: 065
  17. PRILOSEC [Concomitant]
     Indication: PRODUCT USED FOR UNKNOWN INDICATION
     Route: 065
  18. HEPARIN SODIUM INJECTION [Suspect]
     Route: 058
     Dates: start: 20071125, end: 20071125
  19. HEPARIN SODIUM INJECTION [Suspect]
     Route: 042
     Dates: start: 20071212, end: 20071220
  20. HEPARIN SODIUM INJECTION [Suspect]
     Route: 040
     Dates: start: 20071213, end: 20071213
  21. HEPARIN SODIUM INJECTION [Suspect]
     Route: 040
     Dates: start: 20071212, end: 20071212
  22. HEPARIN SODIUM INJECTION [Suspect]
     Route: 058
     Dates: start: 20071125, end: 20071125
  23. WARFARIN [Concomitant]
     Indication: PRODUCT USED FOR UNKNOWN INDICATION
     Route: 065
  24. XANAX [Concomitant]
     Indication: PRODUCT USED FOR UNKNOWN INDICATION
     Route: 065
  25. ASPIRIN [Concomitant]
     Indication: PRODUCT USED FOR UNKNOWN INDICATION
     Route: 065
  26. HEPARIN SODIUM INJECTION [Suspect]
     Route: 058
     Dates: start: 20071114, end: 20071115
  27. HEPARIN SODIUM INJECTION [Suspect]
     Route: 040
     Dates: start: 20071213, end: 20071213
  28. HEPARIN SODIUM INJECTION [Suspect]
     Route: 058
     Dates: start: 20071127, end: 20071127
  29. HEPARIN SODIUM INJECTION [Suspect]
     Route: 042
     Dates: start: 20071113, end: 20080113
  30. HEPARIN SODIUM INJECTION [Suspect]
     Route: 058
     Dates: start: 20071125, end: 20071125
  31. HEPARIN SODIUM INJECTION [Suspect]
     Route: 058
     Dates: start: 20071127, end: 20071127
  32. NORVASC [Concomitant]
     Route: 065
  33. AZITHROMYCIN [Concomitant]
     Indication: PRODUCT USED FOR UNKNOWN INDICATION
     Route: 065
  34. PREDNISONE [Concomitant]
     Indication: PRODUCT USED FOR UNKNOWN INDICATION
     Route: 065
  35. VALIUM [Concomitant]
     Indication: PRODUCT USED FOR UNKNOWN INDICATION
     Route: 065
  36. HEPARIN SODIUM INJECTION [Suspect]
     Route: 042
     Dates: start: 20071212, end: 20071220
  37. HEPARIN SODIUM INJECTION [Suspect]
     Route: 058
     Dates: start: 20071127, end: 20071127
  38. CEFTRIAXONE [Concomitant]
     Indication: PRODUCT USED FOR UNKNOWN INDICATION
     Route: 065
  39. COMBIVENT                               /GFR/ [Concomitant]
     Indication: PRODUCT USED FOR UNKNOWN INDICATION
     Route: 065
  40. HEPARIN SODIUM INJECTION [Suspect]
     Indication: THROMBOSIS
     Route: 042
     Dates: start: 20071113, end: 20080113
  41. HEPARIN SODIUM INJECTION [Suspect]
     Route: 058
     Dates: start: 20071114, end: 20071115
  42. HEPARIN SODIUM INJECTION [Suspect]
     Route: 058
     Dates: start: 20071115, end: 20071115
  43. HEPARIN SODIUM INJECTION [Suspect]
     Route: 058
     Dates: start: 20071126, end: 20071126
  44. HEPARIN SODIUM INJECTION [Suspect]
     Route: 040
     Dates: start: 20071212, end: 20071212
  45. HEPARIN SODIUM INJECTION [Suspect]
     Route: 058
     Dates: start: 20071127, end: 20071127

REACTIONS (19)
  - PULMONARY HYPERTENSION [None]
  - PNEUMOTHORAX [None]
  - SEPSIS [None]
  - DEEP VEIN THROMBOSIS [None]
  - HYPONATRAEMIA [None]
  - LETHARGY [None]
  - HYPOTENSION [None]
  - DYSPHAGIA [None]
  - ATRIAL FIBRILLATION [None]
  - DYSARTHRIA [None]
  - DIZZINESS [None]
  - BREAST CANCER [None]
  - WHEEZING [None]
  - SCLERODERMA [None]
  - HAEMATOCHEZIA [None]
  - DIARRHOEA [None]
  - PLEURAL EFFUSION [None]
  - MENTAL STATUS CHANGES [None]
  - ANXIETY [None]
